FAERS Safety Report 10436584 (Version 3)
Quarter: 2014Q4

REPORT INFORMATION
  Report Type: Spontaneous
  Country: US (occurrence: US)
  Receive Date: 20140908
  Receipt Date: 20141205
  Transmission Date: 20150528
  Serious: No
  Sender: FDA-Public Use
  Company Number: US-BRISTOL-MYERS SQUIBB COMPANY-20342978

PATIENT
  Age: 78 Year
  Sex: Female

DRUGS (1)
  1. ABILIFY DISCMELT [Suspect]
     Active Substance: ARIPIPRAZOLE
     Indication: DEPRESSION
     Dosage: DISCMELTS
     Route: 048

REACTIONS (1)
  - Drug dispensing error [Unknown]
